FAERS Safety Report 5331291-0 (Version None)
Quarter: 2007Q2

REPORT INFORMATION
  Report Type: 
  Country: None (occurrence: None)
  Receive Date: 20070301
  Receipt Date: 20060720
  Transmission Date: 20071010
  Serious: Yes (Other)
  Sender: FDA-Public Use
  Company Number: 2907

PATIENT
  Age: 23 Year
  Sex: Male
  Weight: 77.1115 kg

DRUGS (2)
  1. AMNESTEEM [Suspect]
     Indication: ACNE
     Dosage: 40 MG, BID, PO
     Route: 048
     Dates: start: 20060529, end: 20060630
  2. AMNESTEEM [Suspect]
     Dosage: 20 MG, QD, PO
     Route: 048
     Dates: start: 20060703, end: 20060717

REACTIONS (1)
  - ALANINE AMINOTRANSFERASE INCREASED [None]
